FAERS Safety Report 23227650 (Version 1)
Quarter: 2023Q4

REPORT INFORMATION
  Report Type: Spontaneous
  Country: SE (occurrence: SE)
  Receive Date: 20231124
  Receipt Date: 20231124
  Transmission Date: 20240109
  Serious: Yes (Disabling)
  Sender: FDA-Public Use
  Company Number: SE-CELLTRION INC.-2023SE022613

PATIENT

DRUGS (5)
  1. INFLIXIMAB [Suspect]
     Active Substance: INFLIXIMAB
     Indication: Crohn^s disease
     Dosage: UNK
     Route: 042
     Dates: start: 20210623, end: 20230621
  2. INFLIXIMAB [Suspect]
     Active Substance: INFLIXIMAB
     Indication: Orofacial granulomatosis
  3. INNOVAIR [Concomitant]
     Active Substance: BECLOMETHASONE DIPROPIONATE\FORMOTEROL
     Dosage: 2 DF, EVERY 12 HOURS, 2X2
  4. AZATHIOPRINE [Concomitant]
     Active Substance: AZATHIOPRINE
     Dosage: 500 MG, EVERY 12 HOURS, 1X2
     Route: 048
     Dates: start: 20210617
  5. DESLORATADINE [Concomitant]
     Active Substance: DESLORATADINE
     Dosage: 1-4 VB
     Route: 048
     Dates: start: 20201230

REACTIONS (7)
  - Musculoskeletal stiffness [Not Recovered/Not Resolved]
  - Asthenia [Not Recovered/Not Resolved]
  - Dizziness [Unknown]
  - Fatigue [Not Recovered/Not Resolved]
  - Headache [Not Recovered/Not Resolved]
  - Pain in jaw [Unknown]
  - Intentional product use issue [Unknown]

NARRATIVE: CASE EVENT DATE: 20230621
